FAERS Safety Report 17481804 (Version 1)
Quarter: 2020Q1

REPORT INFORMATION
  Report Type: Spontaneous
  Country: US (occurrence: US)
  Receive Date: 20200302
  Receipt Date: 20200302
  Transmission Date: 20200409
  Serious: No
  Sender: FDA-Public Use
  Company Number: US-TEVA-2020-US-1191066

PATIENT
  Sex: Female

DRUGS (17)
  1. TAMIFLU [Concomitant]
     Active Substance: OSELTAMIVIR PHOSPHATE
     Route: 065
     Dates: start: 20090925
  2. COPAXONE [Concomitant]
     Active Substance: GLATIRAMER ACETATE
     Route: 065
     Dates: start: 20110401
  3. ALPRAZOLAM. [Concomitant]
     Active Substance: ALPRAZOLAM
     Route: 065
     Dates: start: 20080822
  4. NITROFUR MAC [Concomitant]
     Active Substance: NITROFURANTOIN
     Route: 065
     Dates: start: 20091014
  5. CELEBREX [Concomitant]
     Active Substance: CELECOXIB
     Route: 065
     Dates: start: 20080822
  6. LIPITOR [Concomitant]
     Active Substance: ATORVASTATIN CALCIUM
     Route: 065
     Dates: start: 20091130
  7. TAMSULOSIN [Concomitant]
     Active Substance: TAMSULOSIN
     Route: 065
     Dates: start: 20100412
  8. SKELAXIN [Concomitant]
     Active Substance: METAXALONE
     Route: 065
     Dates: start: 20081203
  9. COPAXONE [Concomitant]
     Active Substance: GLATIRAMER ACETATE
     Dates: start: 19000101
  10. COPAXONE [Suspect]
     Active Substance: GLATIRAMER ACETATE
     Indication: MULTIPLE SCLEROSIS
     Dosage: COPAXONE 40 MG TIW
     Route: 058
     Dates: start: 20180208
  11. POT CITRATE [Concomitant]
     Active Substance: POTASSIUM CITRATE
     Route: 065
     Dates: start: 20101004
  12. PREMARIN [Concomitant]
     Active Substance: ESTROGENS, CONJUGATED
     Route: 065
     Dates: start: 20081006
  13. PROVIGIL [Concomitant]
     Active Substance: MODAFINIL
     Route: 065
     Dates: start: 20190101
  14. AMANTADINE. [Concomitant]
     Active Substance: AMANTADINE HYDROCHLORIDE
     Route: 065
     Dates: start: 20100525
  15. AMLOD/BENAZ [Concomitant]
     Dosage: DOSE:10-20 MG
     Route: 065
     Dates: start: 20091210
  16. PROTONIX [Concomitant]
     Active Substance: PANTOPRAZOLE SODIUM
     Route: 065
     Dates: start: 20091025
  17. AVONEX KIT [Concomitant]
     Route: 065
     Dates: start: 20090205

REACTIONS (1)
  - Gait disturbance [Not Recovered/Not Resolved]
